FAERS Safety Report 23494389 (Version 1)
Quarter: 2024Q1

REPORT INFORMATION
  Report Type: Spontaneous
  Country: US (occurrence: US)
  Receive Date: 20240207
  Receipt Date: 20240207
  Transmission Date: 20240410
  Serious: Yes (Hospitalization, Other)
  Sender: FDA-Public Use
  Company Number: US-HIKMA PHARMACEUTICALS-US-H14001-24-00502

PATIENT
  Sex: Female

DRUGS (3)
  1. CISPLATIN [Suspect]
     Active Substance: CISPLATIN
     Indication: Cholangiocarcinoma
     Dosage: 2 DOSES
     Route: 065
     Dates: start: 20210107
  2. GEMCITABINE [Suspect]
     Active Substance: GEMCITABINE
     Indication: Cholangiocarcinoma
     Dosage: 2 DOSES
     Route: 065
     Dates: start: 20210107, end: 2021
  3. GEMCITABINE [Suspect]
     Active Substance: GEMCITABINE
     Indication: Metastases to spine

REACTIONS (10)
  - Ascites [Recovering/Resolving]
  - Urinary tract infection [Recovered/Resolved]
  - Hyperbilirubinaemia [Recovering/Resolving]
  - Staphylococcal bacteraemia [Recovered/Resolved]
  - Pneumonia [Unknown]
  - Condition aggravated [Recovering/Resolving]
  - Hepatic function abnormal [Recovering/Resolving]
  - Escherichia infection [Recovered/Resolved]
  - Drug intolerance [Unknown]
  - Staphylococcal infection [Recovered/Resolved]

NARRATIVE: CASE EVENT DATE: 20210101
